FAERS Safety Report 9373158 (Version 1)
Quarter: 2013Q2

REPORT INFORMATION
  Report Type: Spontaneous
  Country: FR (occurrence: FR)
  Receive Date: 20130627
  Receipt Date: 20130627
  Transmission Date: 20140414
  Serious: Yes (Other)
  Sender: FDA-Public Use
  Company Number: FR-ROXANE LABORATORIES, INC.-2013-RO-01033RO

PATIENT
  Age: 75 Year
  Sex: Female

DRUGS (5)
  1. LEVETIRACETAM [Suspect]
     Indication: EPILEPSY
     Dosage: 1000 MG
  2. VALPROATE [Suspect]
  3. PAROXETINE [Concomitant]
  4. ALIMEMAZINE [Concomitant]
  5. TRINITRIN [Concomitant]

REACTIONS (1)
  - Hypoglycaemia [Recovered/Resolved]
